FAERS Safety Report 9772726 (Version 1)
Quarter: 2013Q4

REPORT INFORMATION
  Report Type: Spontaneous
  Country: US (occurrence: US)
  Receive Date: 20131219
  Receipt Date: 20131219
  Transmission Date: 20140711
  Serious: No
  Sender: FDA-Public Use
  Company Number: US-PFIZER INC-2013362264

PATIENT
  Age: 48 Year
  Sex: Female
  Weight: 147 kg

DRUGS (6)
  1. LEVOTHYROXINE SODIUM [Suspect]
     Indication: THYROID DISORDER
     Dosage: 25 UG, 1X/DAY
  2. LYRICA [Suspect]
     Indication: FIBROMYALGIA
     Dosage: 200 MG, 2X/DAY
     Dates: start: 201003
  3. SERTRALINE HCL [Suspect]
     Dosage: 50 MG, 1X/DAY
  4. CYCLOBENZAPRINE [Suspect]
     Dosage: 10 MG, AS NEEDED
  5. AMITRIPTYLINE [Suspect]
     Dosage: 25 MG, 1X/DAY
  6. BUTALBITAL, ACETAMINOPHEN + CAFFEINE [Suspect]
     Indication: MIGRAINE PROPHYLAXIS
     Dosage: UNK, AS NEEDED

REACTIONS (1)
  - Vision blurred [Unknown]
